FAERS Safety Report 6420952-8 (Version None)
Quarter: 2009Q4

REPORT INFORMATION
  Report Type: 
  Country: None (occurrence: None)
  Receive Date: 20091030
  Receipt Date: 20091026
  Transmission Date: 20100525
  Serious: Yes (Hospitalization, Other)
  Sender: FDA-Public Use
  Company Number: US-ROCHE-642456

PATIENT
  Sex: Female

DRUGS (12)
  1. MYCOPHENOLATE MOFETIL [Suspect]
     Indication: RENAL TRANSPLANT
     Route: 048
     Dates: start: 20070315
  2. BELATACEPT [Suspect]
     Indication: RENAL TRANSPLANT
     Route: 042
     Dates: start: 20070315
  3. PREDNISONE [Suspect]
     Indication: RENAL TRANSPLANT
     Route: 048
     Dates: start: 20090318
  4. PREDNISONE [Suspect]
     Route: 048
  5. INSULIN [Concomitant]
     Dates: start: 20070318
  6. ASPIRIN [Concomitant]
     Dates: start: 20070621
  7. FERROUS SULFATE TAB [Concomitant]
     Dates: start: 20070801
  8. CLOPIDOGREL [Concomitant]
     Dates: start: 20070519
  9. CARDIZEM [Concomitant]
     Dates: start: 20080729
  10. ROSUVASTATIN CALCIUM [Concomitant]
     Dates: start: 20070322
  11. WARFARIN SODIUM [Concomitant]
     Dates: start: 20080903
  12. CARVEDILOL [Concomitant]
     Dates: start: 20090107

REACTIONS (6)
  - ANAEMIA [None]
  - BASAL CELL CARCINOMA [None]
  - CLOSTRIDIAL INFECTION [None]
  - COAGULOPATHY [None]
  - SQUAMOUS CELL CARCINOMA OF SKIN [None]
  - UPPER RESPIRATORY TRACT INFECTION [None]
